FAERS Safety Report 25064331 (Version 1)
Quarter: 2025Q1

REPORT INFORMATION
  Report Type: Spontaneous
  Country: US (occurrence: US)
  Receive Date: 20250311
  Receipt Date: 20250311
  Transmission Date: 20250409
  Serious: Yes (Other)
  Sender: BAYER HEALTHCARE LLC
  Company Number: US-BAYER-2025A031222

PATIENT
  Age: 78 Year
  Sex: Female

DRUGS (2)
  1. ALKA-SELTZER PLUS SEVERE SINUS COLD AND COUGH LIQUID GELS [Suspect]
     Active Substance: ACETAMINOPHEN\DEXTROMETHORPHAN HYDROBROMIDE\GUAIFENESIN\PHENYLEPHRINE HYDROCHLORIDE
     Indication: Hypersensitivity
     Route: 048
     Dates: start: 20250302, end: 20250303
  2. ALKA-SELTZER PLUS SEVERE SINUS COLD AND COUGH LIQUID GELS [Suspect]
     Active Substance: ACETAMINOPHEN\DEXTROMETHORPHAN HYDROBROMIDE\GUAIFENESIN\PHENYLEPHRINE HYDROCHLORIDE
     Indication: Nasopharyngitis

REACTIONS (3)
  - Choking [Recovered/Resolved]
  - Choking [Recovered/Resolved with Sequelae]
  - Product use complaint [None]

NARRATIVE: CASE EVENT DATE: 20250302
